FAERS Safety Report 25384081 (Version 1)
Quarter: 2025Q2

REPORT INFORMATION
  Report Type: Spontaneous
  Country: US (occurrence: US)
  Receive Date: 20250602
  Receipt Date: 20250602
  Transmission Date: 20250717
  Serious: No
  Sender: Steriscience PTE
  Company Number: US-STERISCIENCE B.V.-2025-ST-000610

PATIENT
  Age: 25 Year
  Sex: Female

DRUGS (2)
  1. METOPROLOL [Suspect]
     Active Substance: METOPROLOL
     Indication: Acute myocardial infarction
     Route: 065
  2. ASPIRIN [Suspect]
     Active Substance: ASPIRIN
     Indication: Acute myocardial infarction
     Route: 065

REACTIONS (1)
  - Maternal exposure during pregnancy [Unknown]
